FAERS Safety Report 5449248-8 (Version None)
Quarter: 2007Q3

REPORT INFORMATION
  Report Type: 
  Country: None (occurrence: None)
  Receive Date: 20070911
  Receipt Date: 20070830
  Transmission Date: 20080115
  Serious: Yes (Death)
  Sender: FDA-Public Use
  Company Number: VE-SHR-VE-2007-032482

PATIENT

DRUGS (3)
  1. CAMPATH 30 [Suspect]
     Indication: NON-HODGKIN'S LYMPHOMA
     Dosage: UNK, 3 CYCLES
  2. CYCLOPHOSPHAMIDE W/VINCRISTINE/PREDNISONE [Concomitant]
     Indication: NON-HODGKIN'S LYMPHOMA
     Dosage: UNK, 3 CYCLES
  3. DAUNORUBICIN HCL [Concomitant]
     Indication: NON-HODGKIN'S LYMPHOMA
     Dosage: UNK, 3 CYCLES

REACTIONS (1)
  - PULMONARY HYPERTENSION [None]
